FAERS Safety Report 14256002 (Version 3)
Quarter: 2017Q4

REPORT INFORMATION
  Report Type: Report from Study
  Country: IT (occurrence: IT)
  Receive Date: 20171206
  Receipt Date: 20171214
  Transmission Date: 20180321
  Serious: Yes (Death, Hospitalization)
  Sender: FDA-Public Use
  Company Number: IT-PFIZER INC-2017509897

PATIENT
  Age: 77 Year
  Sex: Male
  Weight: 102 kg

DRUGS (5)
  1. FOSFOMYCIN [Concomitant]
     Active Substance: FOSFOMYCIN
     Indication: KLEBSIELLA INFECTION
     Dosage: 4 G, 3X/DAY
     Route: 042
     Dates: start: 20170904, end: 20170911
  2. GENTAMYCIN [Concomitant]
     Active Substance: GENTAMICIN
     Indication: KLEBSIELLA INFECTION
     Dosage: 240 MG, DAILY
     Route: 042
     Dates: start: 20170901, end: 20170906
  3. COLISTIN [Concomitant]
     Active Substance: COLISTIN
     Indication: KLEBSIELLA INFECTION
     Dosage: 3 G, 3X/DAY
     Route: 042
     Dates: start: 20170906, end: 20170917
  4. ZAVICEFTA [Suspect]
     Active Substance: AVIBACTAM SODIUM\CEFTAZIDIME
     Indication: KLEBSIELLA INFECTION
     Dosage: 6 PLUS 1.5, 3X/DAY
     Route: 042
     Dates: start: 20170918, end: 20170930
  5. MEROPENEM. [Concomitant]
     Active Substance: MEROPENEM
     Indication: KLEBSIELLA INFECTION
     Dosage: 2 G, 3X/DAY
     Route: 042
     Dates: start: 20170827, end: 20171007

REACTIONS (7)
  - Drug ineffective [Fatal]
  - Multiple organ dysfunction syndrome [Fatal]
  - Renal failure [Fatal]
  - Septic shock [Fatal]
  - Respiratory failure [Fatal]
  - Hepatic failure [Fatal]
  - Bacteraemia [Fatal]
